FAERS Safety Report 5058026-3 (Version None)
Quarter: 2006Q3

REPORT INFORMATION
  Report Type: 
  Country: None (occurrence: None)
  Receive Date: 20060721
  Receipt Date: 20060518
  Transmission Date: 20061208
  Serious: No
  Sender: FDA-Public Use
  Company Number: US-GLAXOSMITHKLINE-A0606204A

PATIENT
  Age: 48 Year
  Sex: Male

DRUGS (4)
  1. AVANDIA [Suspect]
     Dosage: 2MG TWICE PER DAY
     Route: 048
  2. METFORMIN [Suspect]
     Dosage: 500MG TWICE PER DAY
     Route: 048
  3. LOTENSIN [Concomitant]
  4. CRESTOR [Concomitant]

REACTIONS (5)
  - BLOOD POTASSIUM DECREASED [None]
  - DIARRHOEA [None]
  - DIZZINESS [None]
  - NAUSEA [None]
  - STOMACH DISCOMFORT [None]
